FAERS Safety Report 11777895 (Version 2)
Quarter: 2015Q4

REPORT INFORMATION
  Report Type: Spontaneous
  Country: US (occurrence: US)
  Receive Date: 20151125
  Receipt Date: 20151204
  Transmission Date: 20160304
  Serious: No
  Sender: FDA-Public Use
  Company Number: US-WATSON-2015-18454

PATIENT

DRUGS (1)
  1. BUPRENORPHINE HYDROCHLORIDE (AELLC) [Suspect]
     Active Substance: BUPRENORPHINE HYDROCHLORIDE
     Indication: DEPENDENCE
     Route: 060

REACTIONS (2)
  - Pruritus [Unknown]
  - Hypersensitivity [Unknown]
